FAERS Safety Report 7178869-X (Version None)
Quarter: 2010Q4

REPORT INFORMATION
  Report Type: 
  Country: None (occurrence: None)
  Receive Date: 20101221
  Receipt Date: 20101210
  Transmission Date: 20110411
  Serious: Yes (Other)
  Sender: FDA-Public Use
  Company Number: US-JNJFOC-20101204791

PATIENT
  Sex: Female
  Weight: 78.02 kg

DRUGS (8)
  1. REMICADE [Suspect]
     Indication: RHEUMATOID ARTHRITIS
     Route: 042
  2. ACTONEL [Concomitant]
     Indication: OSTEOPENIA
     Route: 054
  3. DIOVAN [Concomitant]
     Indication: BLOOD PRESSURE
     Dosage: 160/25 MG ONCE DAILY
     Route: 048
  4. FOLIC ACID [Concomitant]
     Indication: RHEUMATOID ARTHRITIS
     Route: 048
  5. METHOTREXATE [Concomitant]
     Indication: RHEUMATOID ARTHRITIS
     Route: 048
  6. PEPCID [Concomitant]
     Indication: DYSPEPSIA
     Route: 048
  7. ALLEGRA [Concomitant]
     Indication: MULTIPLE ALLERGIES
     Route: 048
  8. LIPITOR [Concomitant]
     Indication: BLOOD CHOLESTEROL
     Route: 048

REACTIONS (7)
  - ARTERIAL DISORDER [None]
  - CAROTID ARTERY OCCLUSION [None]
  - ERYTHEMA [None]
  - GASTRIC HAEMORRHAGE [None]
  - HERPES ZOSTER [None]
  - LOCALISED INFECTION [None]
  - NASAL OEDEMA [None]
